FAERS Safety Report 24221664 (Version 1)
Quarter: 2024Q3

REPORT INFORMATION
  Report Type: Spontaneous
  Country: DE (occurrence: DE)
  Receive Date: 20240819
  Receipt Date: 20240819
  Transmission Date: 20241017
  Serious: Yes (Hospitalization, Other)
  Sender: SANDOZ
  Company Number: DE-ROCHE-2154800

PATIENT
  Age: 35 Year
  Sex: Female

DRUGS (33)
  1. COMIRNATY (TOZINAMERAN) [Suspect]
     Active Substance: TOZINAMERAN
     Indication: COVID-19 prophylaxis
     Dosage: FIRST DOSEUNK
     Route: 065
  2. COMIRNATY (TOZINAMERAN) [Suspect]
     Active Substance: TOZINAMERAN
     Dosage: SECOND DOSEUNK
     Route: 065
     Dates: start: 20210602
  3. COMIRNATY (TOZINAMERAN) [Suspect]
     Active Substance: TOZINAMERAN
     Dosage: UNK
     Route: 065
     Dates: start: 20211201
  4. CORTISONE [Suspect]
     Active Substance: CORTISONE
     Indication: Product used for unknown indication
     Dosage: UNK
     Route: 065
  5. METHYLPREDNISOLONE [Suspect]
     Active Substance: METHYLPREDNISOLONE
     Indication: Product used for unknown indication
     Dosage: 100 MG
     Route: 042
     Dates: start: 20180702
  6. OCREVUS [Suspect]
     Active Substance: OCRELIZUMAB
     Route: 042
  7. OCREVUS [Suspect]
     Active Substance: OCRELIZUMAB
     Dosage: 600.000MG
     Route: 042
     Dates: start: 20180702, end: 20180702
  8. OCREVUS [Suspect]
     Active Substance: OCRELIZUMAB
     Dosage: 600.000MG
     Route: 042
     Dates: start: 20180702, end: 20180702
  9. OCREVUS [Suspect]
     Active Substance: OCRELIZUMAB
     Indication: Relapsing-remitting multiple sclerosis
     Dosage: UNK
     Route: 042
  10. OCREVUS [Suspect]
     Active Substance: OCRELIZUMAB
     Route: 042
  11. OCREVUS [Suspect]
     Active Substance: OCRELIZUMAB
     Dosage: 300.000MG
     Route: 042
     Dates: start: 20180702
  12. OCREVUS [Suspect]
     Active Substance: OCRELIZUMAB
     Dosage: 300.000MG
     Route: 042
     Dates: start: 20180716
  13. OCREVUS [Suspect]
     Active Substance: OCRELIZUMAB
     Dosage: 300.000MG
     Route: 042
     Dates: start: 20220922
  14. OCREVUS [Suspect]
     Active Substance: OCRELIZUMAB
     Dosage: 600 MG 6TH MAINTENANCE DOSE
     Route: 042
     Dates: start: 20210729
  15. OCREVUS [Suspect]
     Active Substance: OCRELIZUMAB
     Dosage: 600.000MG
     Route: 042
     Dates: start: 20190114
  16. DESLORATADINE [Concomitant]
     Active Substance: DESLORATADINE
     Indication: Product used for unknown indication
     Dosage: 5 MG
     Route: 065
     Dates: start: 20180702
  17. DESLORATADINE [Concomitant]
     Active Substance: DESLORATADINE
     Dosage: 5.000MG
     Route: 048
     Dates: start: 20180702
  18. DIMETHINDENE [Concomitant]
     Active Substance: DIMETHINDENE
     Indication: Product used for unknown indication
     Dosage: 4 MG
     Route: 065
     Dates: start: 20180702
  19. DIMETHINDENE [Concomitant]
     Active Substance: DIMETHINDENE
     Dosage: 4.000MG
     Route: 042
     Dates: start: 20180702
  20. DRONABINOL [Concomitant]
     Active Substance: DRONABINOL
     Indication: Product used for unknown indication
     Dosage: 18 DRP, QD (18 DROPS AT NIGHT)
     Route: 065
  21. DRONABINOL [Concomitant]
     Active Substance: DRONABINOL
     Dosage: 18 DROPS AT NIGHT
     Route: 065
  22. DRONABINOL [Concomitant]
     Active Substance: DRONABINOL
     Dosage: 18 DROPS AT NIGHT
     Route: 065
  23. DRONABINOL [Concomitant]
     Active Substance: DRONABINOL
     Dosage: 18 DROPS AT NIGHT
     Route: 065
  24. DRONABINOL [Concomitant]
     Active Substance: DRONABINOL
     Dosage: 18 DROPS AT NIGHT
     Route: 065
  25. SODIUM CHLORIDE [Concomitant]
     Active Substance: SODIUM CHLORIDE
     Indication: Product used for unknown indication
     Dosage: UNK
     Route: 065
     Dates: start: 20180702
  26. SODIUM CHLORIDE [Concomitant]
     Active Substance: SODIUM CHLORIDE
     Route: 042
     Dates: start: 20180702
  27. ACETAMINOPHEN [Concomitant]
     Active Substance: ACETAMINOPHEN
     Indication: Product used for unknown indication
     Dosage: 1000 MG
     Route: 065
     Dates: start: 20180702
  28. ACETAMINOPHEN [Concomitant]
     Active Substance: ACETAMINOPHEN
     Dosage: 1000.000MG
     Route: 048
     Dates: start: 20180702
  29. NABIXIMOLS [Concomitant]
     Active Substance: NABIXIMOLS
     Indication: Product used for unknown indication
     Dosage: UNK
     Route: 065
  30. NABIXIMOLS [Concomitant]
     Active Substance: NABIXIMOLS
     Route: 065
  31. NABIXIMOLS [Concomitant]
     Active Substance: NABIXIMOLS
     Route: 065
  32. NABIXIMOLS [Concomitant]
     Active Substance: NABIXIMOLS
     Route: 065
  33. NABIXIMOLS [Concomitant]
     Active Substance: NABIXIMOLS
     Route: 065

REACTIONS (30)
  - Clavicle fracture [Recovered/Resolved]
  - Rib fracture [Recovered/Resolved]
  - Hand fracture [Recovering/Resolving]
  - Pelvic fracture [Recovered/Resolved]
  - Multiple sclerosis relapse [Recovered/Resolved]
  - Skin hypertrophy [Not Recovered/Not Resolved]
  - COVID-19 [Recovered/Resolved]
  - Hyperhidrosis [Recovered/Resolved]
  - Fatigue [Recovered/Resolved]
  - Chills [Recovered/Resolved]
  - Nausea [Recovered/Resolved]
  - Hypotension [Recovered/Resolved]
  - Oropharyngeal pain [Recovered/Resolved]
  - Cardiovascular disorder [Recovered/Resolved]
  - SARS-CoV-2 antibody test negative [Not Recovered/Not Resolved]
  - Vulvovaginal inflammation [Not Recovered/Not Resolved]
  - Alopecia [Recovered/Resolved]
  - Hypothyroidism [Not Recovered/Not Resolved]
  - B-lymphocyte count decreased [Unknown]
  - Renal function test abnormal [Recovered/Resolved]
  - Blood uric acid increased [Recovered/Resolved]
  - Vulvovaginal burning sensation [Recovered/Resolved]
  - Fluid retention [Not Recovered/Not Resolved]
  - Bronchitis [Recovered/Resolved]
  - Influenza [Recovered/Resolved]
  - Weight increased [Recovered/Resolved]
  - Depressed mood [Recovered/Resolved]
  - Headache [Recovered/Resolved]
  - Nasopharyngitis [Recovered/Resolved]
  - Therapeutic product effect decreased [Recovered/Resolved]

NARRATIVE: CASE EVENT DATE: 20180702
